FAERS Safety Report 23630128 (Version 1)
Quarter: 2024Q1

REPORT INFORMATION
  Report Type: Report from Study
  Country: US (occurrence: US)
  Receive Date: 20240314
  Receipt Date: 20240314
  Transmission Date: 20240410
  Serious: No
  Sender: FDA-Public Use
  Company Number: US-BIOVITRUM-2023-US-008713

PATIENT
  Age: 69 Year
  Sex: Male

DRUGS (4)
  1. KINERET [Suspect]
     Active Substance: ANAKINRA
     Indication: Rheumatoid arthritis
     Dosage: 100 MG DAILY, 100MG/0.67ML
     Route: 058
     Dates: start: 20230208, end: 20240124
  2. KINERET [Suspect]
     Active Substance: ANAKINRA
     Dosage: 100MG QD
     Route: 058
  3. CLARITIN [Concomitant]
     Active Substance: LORATADINE
     Indication: Product used for unknown indication
     Route: 065
  4. IRON [Concomitant]
     Active Substance: IRON
     Indication: Product used for unknown indication
     Route: 065

REACTIONS (7)
  - Injection site erythema [Unknown]
  - Injection site pruritus [Recovered/Resolved]
  - Rash [Unknown]
  - Injection site rash [Recovered/Resolved]
  - Injection site urticaria [Recovered/Resolved]
  - Gait disturbance [Unknown]
  - Adverse drug reaction [Unknown]
